FAERS Safety Report 8028135-5 (Version None)
Quarter: 2011Q4

REPORT INFORMATION
  Report Type: 
  Country: None (occurrence: None)
  Receive Date: 20111130
  Receipt Date: 20110727
  Transmission Date: 20120403
  Serious: Yes (Hospitalization)
  Sender: FDA-Public Use
  Company Number: DL2011-0828

PATIENT
  Age: 54 Year
  Sex: Male
  Weight: 340 kg

DRUGS (23)
  1. ANDROGEL [Concomitant]
  2. DEMADEX [Concomitant]
  3. ALLOPURINOL [Concomitant]
  4. ALLEGRA [Concomitant]
  5. CALCIUM CARBONATE [Concomitant]
  6. BYETTA [Suspect]
     Dosage: 10 UG, 2/D ; 5 UG, 2/D
     Dates: start: 20051201
  7. BYETTA [Suspect]
     Dosage: 10 UG, 2/D ; 5 UG, 2/D
     Dates: start: 20060107, end: 20071101
  8. EXENATIDE 5MCG PEN, DISPOSABLE DEVICE (EXENATIDE PEN (5MCG)) PEN,DISPO [Concomitant]
  9. ENBREL [Concomitant]
  10. DIAZEPAM [Concomitant]
  11. FOSAMAX [Concomitant]
  12. ACTOS [Concomitant]
  13. ZOCOR [Concomitant]
  14. VITAMIN B COMPLEX CAP [Concomitant]
  15. VITAMIN D [Concomitant]
  16. FISH OIL (FISH OIL) [Concomitant]
  17. ASPIRIN [Concomitant]
  18. EXENATIDE 10MCG PEN, DISPOSABLE DEVICE (EXENATIDE PEN (10MCG)) PEN,DIS [Concomitant]
  19. AMARYL [Concomitant]
  20. OXYCONTIN [Concomitant]
  21. METOLAZONE [Concomitant]
  22. LISINOPRIL [Concomitant]
  23. LANTUS [Concomitant]

REACTIONS (2)
  - OFF LABEL USE [None]
  - PANCREATITIS ACUTE [None]
